FAERS Safety Report 9293465 (Version 1)
Quarter: 2013Q2

REPORT INFORMATION
  Report Type: Spontaneous
  Country: US (occurrence: US)
  Receive Date: 20130517
  Receipt Date: 20130517
  Transmission Date: 20140414
  Serious: No
  Sender: FDA-Public Use
  Company Number: US-009507513-1305USA008940

PATIENT
  Age: 51 Year
  Sex: Male

DRUGS (4)
  1. PEGINTRON [Suspect]
     Indication: HEPATITIS C
     Dosage: 150 MICROGRAM/0.5ML
     Dates: start: 20130107
  2. LANTUS [Concomitant]
  3. BENAZEPRIL HYDROCHLORIDE [Concomitant]
  4. AMLODIPINE [Concomitant]

REACTIONS (5)
  - Injection site rash [Recovering/Resolving]
  - Nausea [Recovering/Resolving]
  - Influenza like illness [Recovering/Resolving]
  - Depression [Recovering/Resolving]
  - Product quality issue [Unknown]
